FAERS Safety Report 21374395 (Version 2)
Quarter: 2022Q3

REPORT INFORMATION
  Report Type: Report from Study
  Country: PH (occurrence: PH)
  Receive Date: 20220926
  Receipt Date: 20220930
  Transmission Date: 20221026
  Serious: Yes (Death)
  Sender: FDA-Public Use
  Company Number: PH-NOVARTISPH-NVSC2022PH216655

PATIENT
  Age: 61 Year
  Sex: Female

DRUGS (2)
  1. RIBOCICLIB [Suspect]
     Active Substance: RIBOCICLIB
     Indication: Product used for unknown indication
     Dosage: 200 MG, OTHER (2 TABLETS ONCE A DAY FOR 3 WEEKS (21 DAYS ONLY))
     Route: 048
  2. LETROZOLE [Suspect]
     Active Substance: LETROZOLE
     Indication: Product used for unknown indication
     Dosage: 2.5 MG, QD
     Route: 048

REACTIONS (1)
  - Disease progression [Fatal]
